FAERS Safety Report 24281379 (Version 1)
Quarter: 2024Q3

REPORT INFORMATION
  Report Type: Spontaneous
  Country: US (occurrence: US)
  Receive Date: 20240904
  Receipt Date: 20240904
  Transmission Date: 20241016
  Serious: No
  Sender: PUMA
  Company Number: US-PUMA BIOTECHNOLOGY, LTD.-2023-PUM-US001437

PATIENT

DRUGS (7)
  1. NERLYNX [Suspect]
     Active Substance: NERATINIB
     Indication: Triple positive breast cancer
     Dosage: 80 MG, DAILY
     Route: 048
     Dates: start: 20230726, end: 2023
  2. NERLYNX [Suspect]
     Active Substance: NERATINIB
     Dosage: 80 MG, DAILY
     Route: 048
     Dates: start: 2023, end: 2023
  3. NERLYNX [Suspect]
     Active Substance: NERATINIB
     Dosage: 120 MG, DAILY
     Route: 048
     Dates: start: 2023, end: 2023
  4. NERLYNX [Suspect]
     Active Substance: NERATINIB
     Dosage: UNK
     Route: 048
     Dates: start: 2023, end: 2023
  5. NERLYNX [Suspect]
     Active Substance: NERATINIB
     Dosage: UNK
     Route: 048
     Dates: start: 2023
  6. LOMOTIL [Suspect]
     Active Substance: ATROPINE SULFATE\DIPHENOXYLATE HYDROCHLORIDE
     Indication: Prophylaxis against diarrhoea
  7. IMODIUM [Suspect]
     Active Substance: LOPERAMIDE HYDROCHLORIDE
     Indication: Prophylaxis against diarrhoea

REACTIONS (7)
  - Diarrhoea [Unknown]
  - Impaired quality of life [Unknown]
  - Impaired work ability [Unknown]
  - Malaise [Unknown]
  - Abdominal distension [Unknown]
  - Fatigue [Unknown]
  - Drug titration error [Unknown]

NARRATIVE: CASE EVENT DATE: 20230101
